FAERS Safety Report 9256286 (Version 1)
Quarter: 2013Q2

REPORT INFORMATION
  Report Type: Spontaneous
  Country: US (occurrence: US)
  Receive Date: 20130425
  Receipt Date: 20130425
  Transmission Date: 20140414
  Serious: No
  Sender: FDA-Public Use
  Company Number: US-AMGEN-USASP2012057890

PATIENT
  Sex: Female

DRUGS (5)
  1. NEULASTA [Suspect]
     Indication: CHEMOTHERAPY
     Dosage: UNK
  2. 5-FU [Concomitant]
     Dosage: UNK
  3. EPIRUBICIN [Concomitant]
     Dosage: UNK
  4. CYTOXAN [Concomitant]
     Dosage: UNK
  5. ANTIEMETICS AND ANTINAUSEANTS [Concomitant]
     Dosage: UNK

REACTIONS (2)
  - Crying [Unknown]
  - Emotional disorder [Unknown]
